FAERS Safety Report 17691299 (Version 2)
Quarter: 2020Q3

REPORT INFORMATION
  Report Type: Other
  Country: FR (occurrence: FR)
  Receive Date: 20200422
  Receipt Date: 20200623
  Transmission Date: 20201104
  Serious: Yes (Hospitalization)
  Sender: FDA-Public Use
  Company Number: FR-CELLTRION INC.-2020FR021719

PATIENT

DRUGS (17)
  1. BENDAMUSTINE [BENDAMUSTINE HYDROCHLORIDE] [Suspect]
     Active Substance: BENDAMUSTINE HYDROCHLORIDE
     Indication: LYMPHOMA
     Dosage: UNK
     Dates: start: 20200303
  2. VERAPAMIL [VERAPAMIL HYDROCHLORIDE] [Concomitant]
     Active Substance: VERAPAMIL HYDROCHLORIDE
  3. HYDROXYZINE [HYDROXYZINE HYDROCHLORIDE] [Concomitant]
     Active Substance: HYDROXYZINE HYDROCHLORIDE
  4. ELIQUIS [Concomitant]
     Active Substance: APIXABAN
     Dosage: UNK
     Dates: start: 201911
  5. ONDANSETRON [Concomitant]
     Active Substance: ONDANSETRON
  6. PREGABALINE [Concomitant]
     Active Substance: PREGABALIN
  7. RITUXIMAB (UNKNOWN) [Suspect]
     Active Substance: RITUXIMAB
     Indication: LYMPHOMA
     Dosage: UNK
     Dates: start: 20200303
  8. BACTRIM [Concomitant]
     Active Substance: SULFAMETHOXAZOLE\TRIMETHOPRIM
     Indication: PROPHYLAXIS
     Dosage: UNK
     Dates: end: 20200326
  9. LEVOTHYROXINE SODIQUE [Concomitant]
     Active Substance: LEVOTHYROXINE SODIUM
  10. PANTOPRAZOLE [Concomitant]
     Active Substance: PANTOPRAZOLE
  11. POLATUZUMAB VEDOTIN. [Suspect]
     Active Substance: POLATUZUMAB VEDOTIN
     Indication: LYMPHOMA
     Dosage: UNK
     Dates: start: 20200303
  12. ZARZIO [Concomitant]
     Active Substance: FILGRASTIM
  13. GEMCITABINE. [Concomitant]
     Active Substance: GEMCITABINE
     Indication: LYMPHOMA
     Dosage: UNK
     Dates: start: 20200401
  14. VALACICLOVIR [VALACICLOVIR HYDROCHLORIDE] [Concomitant]
  15. ACIDE FOLIQUE [Concomitant]
     Active Substance: FOLIC ACID
  16. TOPALGIC [TRAMADOL HYDROCHLORIDE] [Concomitant]
     Active Substance: TRAMADOL HYDROCHLORIDE
  17. DIOSMECTITE [Concomitant]
     Active Substance: MONTMORILLONITE

REACTIONS (1)
  - Toxic skin eruption [Unknown]

NARRATIVE: CASE EVENT DATE: 20200326
